FAERS Safety Report 25581848 (Version 1)
Quarter: 2025Q3

REPORT INFORMATION
  Report Type: Spontaneous
  Country: CA (occurrence: CA)
  Receive Date: 20250719
  Receipt Date: 20250719
  Transmission Date: 20251021
  Serious: Yes (Other)
  Sender: CELLTRION
  Company Number: CA-PFIZER INC-202500141500

PATIENT

DRUGS (2)
  1. INFLECTRA [Suspect]
     Active Substance: INFLIXIMAB-DYYB
     Indication: Colitis ulcerative
     Route: 042
     Dates: start: 20250522
  2. AZATHIOPRINE [Concomitant]
     Active Substance: AZATHIOPRINE
     Route: 065

REACTIONS (2)
  - Cholecystectomy [Unknown]
  - Off label use [Unknown]

NARRATIVE: CASE EVENT DATE: 20250705
